FAERS Safety Report 4336295-2 (Version None)
Quarter: 2004Q2

REPORT INFORMATION
  Report Type: 
  Country: None (occurrence: None)
  Receive Date: 20040407
  Receipt Date: 20040324
  Transmission Date: 20050107
  Serious: Yes (Hospitalization, Other)
  Sender: FDA-Public Use
  Company Number: USA031049630

PATIENT
  Age: 87 Year
  Sex: Female

DRUGS (4)
  1. FORTEO [Suspect]
     Indication: OSTEOPOROSIS
     Dosage: 20 UG/1 DAY
     Dates: start: 20031003, end: 20031201
  2. LIPITOR [Concomitant]
  3. NORVASC [Concomitant]
  4. BENICAR (BENICAR) [Concomitant]

REACTIONS (9)
  - BACK PAIN [None]
  - DIZZINESS [None]
  - FALL [None]
  - FEELING HOT [None]
  - HIP FRACTURE [None]
  - MOVEMENT DISORDER [None]
  - PAIN EXACERBATED [None]
  - PELVIC FRACTURE [None]
  - PHARMACEUTICAL PRODUCT COMPLAINT [None]
